FAERS Safety Report 19615155 (Version 3)
Quarter: 2021Q3

REPORT INFORMATION
  Report Type: Spontaneous
  Country: HU (occurrence: HU)
  Receive Date: 20210727
  Receipt Date: 20210825
  Transmission Date: 20211014
  Serious: Yes (Hospitalization, Other)
  Sender: FDA-Public Use
  Company Number: HU-ORGANON-1904HUN004018

PATIENT
  Age: 52 Year
  Sex: Male

DRUGS (9)
  1. MIRTAZAPINE. [Suspect]
     Active Substance: MIRTAZAPINE
     Dosage: UNK
     Route: 065
     Dates: start: 2017
  2. PALIPERIDONE. [Suspect]
     Active Substance: PALIPERIDONE
     Indication: SCHIZOPHRENIA
     Dosage: UNK, DOSAGE FORM: OROS (ORAL OSMOTIC) THERAPEUTIC SYSTEM TABLET
     Route: 048
     Dates: start: 2017
  3. BIPERIDEN [Suspect]
     Active Substance: BIPERIDEN
     Route: 065
  4. HALOPERIDOL. [Suspect]
     Active Substance: HALOPERIDOL
     Dosage: DOSAGE FORM: UNSPECIFIED
     Route: 065
     Dates: start: 2017
  5. BIPERIDEN [Suspect]
     Active Substance: BIPERIDEN
     Dosage: DOSAGE FORM: UNSPECIFIED
     Route: 065
     Dates: start: 2017
  6. QUETIAPINE FUMARATE. [Suspect]
     Active Substance: QUETIAPINE FUMARATE
     Dosage: DOSAGE FORM: UNSPECIFIED
     Route: 065
     Dates: start: 2017
  7. HALOPERIDOL. [Suspect]
     Active Substance: HALOPERIDOL
     Route: 065
  8. RIVOTRIL [Suspect]
     Active Substance: CLONAZEPAM
     Dosage: DOSE WAS INCREASED
     Dates: start: 20170817
  9. RIVOTRIL [Suspect]
     Active Substance: CLONAZEPAM
     Dosage: DOSAGE FORM: UNSPECIFIED
     Route: 065
     Dates: start: 2017

REACTIONS (6)
  - Paraparesis [Recovered/Resolved]
  - Spinal compression fracture [Recovered/Resolved]
  - Lumbar vertebral fracture [Recovered/Resolved]
  - Fall [Recovered/Resolved]
  - Hyponatraemia [Recovered/Resolved]
  - Thoracic vertebral fracture [Recovered/Resolved]

NARRATIVE: CASE EVENT DATE: 2017
